FAERS Safety Report 5089198-2 (Version None)
Quarter: 2006Q3

REPORT INFORMATION
  Report Type: 
  Country: None (occurrence: None)
  Receive Date: 20060822
  Receipt Date: 20060814
  Transmission Date: 20061208
  Serious: Yes (Hospitalization)
  Sender: FDA-Public Use
  Company Number: 163-20785-06080526

PATIENT
  Sex: Male

DRUGS (1)
  1. THALOMID [Suspect]
     Indication: MULTIPLE MYELOMA
     Dosage: 100 MG
     Dates: start: 20060711

REACTIONS (9)
  - DYSPHAGIA [None]
  - EPISTAXIS [None]
  - GENERALISED ERYTHEMA [None]
  - GLOSSODYNIA [None]
  - HAEMORRHAGE [None]
  - ORAL PAIN [None]
  - RASH GENERALISED [None]
  - SKIN EXFOLIATION [None]
  - STOMATITIS [None]
